FAERS Safety Report 16501545 (Version 1)
Quarter: 2019Q3

REPORT INFORMATION
  Report Type: Spontaneous
  Country: US (occurrence: US)
  Receive Date: 20190629
  Receipt Date: 20190629
  Transmission Date: 20191004
  Serious: Yes (Life-Threatening, Hospitalization, Other)
  Sender: FDA-Public Use
  Company Number: None

PATIENT
  Age: 21 Year
  Sex: Female
  Weight: 58.05 kg

DRUGS (3)
  1. FLUOXETINE [Concomitant]
     Active Substance: FLUOXETINE HYDROCHLORIDE
     Dates: start: 20090101, end: 20190627
  2. BACH RESCUE PASTILLES NATURAL STRESS RELIEF [Suspect]
     Active Substance: HOMEOPATHICS
     Dates: start: 20190613, end: 20190627
  3. BUSPIRONE [Concomitant]
     Active Substance: BUSPIRONE HYDROCHLORIDE
     Dates: start: 20090101, end: 20190627

REACTIONS (4)
  - Drug interaction [None]
  - Serotonin syndrome [None]
  - Herbal interaction [None]
  - Panic attack [None]

NARRATIVE: CASE EVENT DATE: 20190627
